FAERS Safety Report 17893644 (Version 2)
Quarter: 2020Q2

REPORT INFORMATION
  Report Type: Spontaneous
  Country: FR (occurrence: FR)
  Receive Date: 20200615
  Receipt Date: 20200630
  Transmission Date: 20200714
  Serious: Yes (Hospitalization, Other)
  Sender: FDA-Public Use
  Company Number: FR-AUROBINDO-AUR-APL-2020-028426

PATIENT
  Age: 46 Year
  Sex: Female
  Weight: 54.5 kg

DRUGS (30)
  1. PHOCYTAN [Concomitant]
     Active Substance: .ALPHA.-GLUCOSE-1-PHOSPHATE
     Indication: PRODUCT USED FOR UNKNOWN INDICATION
     Dosage: UNK
     Route: 065
     Dates: start: 20190930, end: 20191001
  2. URAPIDIL [Concomitant]
     Active Substance: URAPIDIL
     Indication: PRODUCT USED FOR UNKNOWN INDICATION
     Dosage: UNK
     Route: 065
     Dates: start: 20190929, end: 20191002
  3. VALGANCICLOVIR. [Suspect]
     Active Substance: VALGANCICLOVIR
     Indication: PRODUCT USED FOR UNKNOWN INDICATION
     Dosage: UNK
     Route: 065
  4. ADOPORT [Suspect]
     Active Substance: TACROLIMUS
     Indication: RENAL TRANSPLANT
     Dosage: 6 MILLIGRAM
     Route: 048
     Dates: start: 20190926
  5. ADOPORT [Suspect]
     Active Substance: TACROLIMUS
     Dosage: 7 MILLIGRAM
     Route: 048
     Dates: start: 20190926
  6. ADOPORT [Suspect]
     Active Substance: TACROLIMUS
     Dosage: 5 MILLIGRAM
     Route: 048
     Dates: start: 20191031, end: 20191108
  7. ADOPORT [Suspect]
     Active Substance: TACROLIMUS
     Dosage: 1 MILLIGRAM
     Route: 048
     Dates: start: 20191116, end: 20191121
  8. ADOPORT [Suspect]
     Active Substance: TACROLIMUS
     Dosage: 3 MILLIGRAM
     Route: 048
     Dates: start: 20191121, end: 20191224
  9. PREDNISONE. [Concomitant]
     Active Substance: PREDNISONE
     Indication: PRODUCT USED FOR UNKNOWN INDICATION
     Dosage: UNK
     Route: 065
     Dates: start: 20191002
  10. ADOPORT [Suspect]
     Active Substance: TACROLIMUS
     Dosage: 9 MILLIGRAM
     Route: 048
     Dates: start: 20190926, end: 20190927
  11. ROVALCYTE [Concomitant]
     Active Substance: VALGANCICLOVIR HYDROCHLORIDE
     Indication: PRODUCT USED FOR UNKNOWN INDICATION
     Dosage: UNK
     Route: 065
     Dates: start: 20190926
  12. SOLU-MEDROL [Concomitant]
     Active Substance: METHYLPREDNISOLONE SODIUM SUCCINATE
     Indication: PRODUCT USED FOR UNKNOWN INDICATION
     Dosage: UNK
     Route: 065
     Dates: start: 20190927
  13. ATARAX [Concomitant]
     Active Substance: HYDROXYZINE HYDROCHLORIDE
     Indication: PRODUCT USED FOR UNKNOWN INDICATION
     Dosage: UNK
     Route: 065
     Dates: start: 20190926, end: 20190930
  14. LASILIX [Concomitant]
     Active Substance: FUROSEMIDE
     Indication: PRODUCT USED FOR UNKNOWN INDICATION
     Dosage: UNK
     Route: 065
     Dates: start: 20190930, end: 20190930
  15. ARANESP [Concomitant]
     Active Substance: DARBEPOETIN ALFA
     Indication: PRODUCT USED FOR UNKNOWN INDICATION
     Dosage: UNK
     Route: 065
     Dates: start: 20190927
  16. LANSOPRAZOLE. [Concomitant]
     Active Substance: LANSOPRAZOLE
     Indication: PRODUCT USED FOR UNKNOWN INDICATION
     Dosage: UNK
     Route: 065
     Dates: start: 20190927, end: 20191004
  17. ADOPORT [Suspect]
     Active Substance: TACROLIMUS
     Dosage: 4 MILLIGRAM
     Route: 048
     Dates: start: 20190926
  18. ADOPORT [Suspect]
     Active Substance: TACROLIMUS
     Dosage: 7 MILLIGRAM
     Route: 048
     Dates: start: 20190928, end: 20191003
  19. ADOPORT [Suspect]
     Active Substance: TACROLIMUS
     Dosage: 4 MILLIGRAM
     Route: 048
     Dates: start: 20191108, end: 20191116
  20. PHLOROGLUCINOL [Concomitant]
     Active Substance: PHLOROGLUCINOL
     Indication: PRODUCT USED FOR UNKNOWN INDICATION
     Dosage: UNK
     Route: 065
     Dates: start: 20190926, end: 20191001
  21. ADOPORT [Suspect]
     Active Substance: TACROLIMUS
     Dosage: 8 MILLIGRAM
     Route: 048
     Dates: start: 20190927, end: 20190928
  22. ADOPORT [Suspect]
     Active Substance: TACROLIMUS
     Dosage: 6 MILLIGRAM
     Route: 048
     Dates: start: 20191004, end: 20191031
  23. ADOPORT [Suspect]
     Active Substance: TACROLIMUS
     Dosage: 6 MILLIGRAM
     Route: 048
     Dates: start: 20191224
  24. BACTRIM [Suspect]
     Active Substance: SULFAMETHOXAZOLE\TRIMETHOPRIM
     Indication: PRODUCT USED FOR UNKNOWN INDICATION
     Dosage: UNK
     Route: 065
     Dates: start: 20191002
  25. MYFORTIC [Concomitant]
     Active Substance: MYCOPHENOLATE SODIUM
     Indication: PRODUCT USED FOR UNKNOWN INDICATION
     Dosage: UNK
     Route: 065
     Dates: start: 20190926
  26. NEBIVOLOL. [Concomitant]
     Active Substance: NEBIVOLOL
     Indication: PRODUCT USED FOR UNKNOWN INDICATION
     Dosage: UNK
     Route: 065
     Dates: start: 20190925
  27. ADOPORT [Suspect]
     Active Substance: TACROLIMUS
     Dosage: 6.5 MILLIGRAM
     Route: 048
     Dates: start: 20191003, end: 20191004
  28. ADOPORT [Suspect]
     Active Substance: TACROLIMUS
     Dosage: 7 MILLIGRAM
     Route: 048
     Dates: start: 20190928
  29. AMLOR [Concomitant]
     Active Substance: AMLODIPINE BESYLATE
     Indication: PRODUCT USED FOR UNKNOWN INDICATION
     Dosage: UNK
     Route: 065
     Dates: start: 20190929
  30. THYMOGLOBULINE [Concomitant]
     Active Substance: LAPINE T-LYMPHOCYTE IMMUNE GLOBULIN
     Indication: PRODUCT USED FOR UNKNOWN INDICATION
     Dosage: UNK
     Route: 065
     Dates: start: 20190926, end: 20190930

REACTIONS (14)
  - Hyperthermia [Recovering/Resolving]
  - Hypokalaemia [Recovered/Resolved]
  - Confusional state [Recovered/Resolved]
  - Blood glucose fluctuation [Recovered/Resolved]
  - Iron deficiency [Recovering/Resolving]
  - Bacterial pyelonephritis [Recovered/Resolved]
  - Oral dysaesthesia [Recovered/Resolved]
  - Diarrhoea [Recovering/Resolving]
  - Escherichia pyelonephritis [Recovered/Resolved]
  - Leukopenia [Recovering/Resolving]
  - Hypophosphataemia [Recovered/Resolved]
  - Anaemia [Not Recovered/Not Resolved]
  - Neutropenia [Recovering/Resolving]
  - Hypomagnesaemia [Recovered/Resolved]

NARRATIVE: CASE EVENT DATE: 20190929
